FAERS Safety Report 4277150-6 (Version None)
Quarter: 2004Q1

REPORT INFORMATION
  Report Type: 
  Country: None (occurrence: None)
  Receive Date: 20040120
  Receipt Date: 20040109
  Transmission Date: 20041129
  Serious: Yes (Hospitalization)
  Sender: FDA-Public Use
  Company Number: A-CH2004-04219

PATIENT
  Age: 10 Year
  Sex: Male
  Weight: 24 kg

DRUGS (2)
  1. TRACLEER [Suspect]
     Indication: PULMONARY HYPERTENSION
     Dosage: 62.5 MG, ORAL
     Route: 048
     Dates: start: 20030113, end: 20030201
  2. TRACLEER [Suspect]
     Indication: PULMONARY HYPERTENSION
     Dosage: 62.5 MG, ORAL
     Route: 048
     Dates: start: 20030201, end: 20031201

REACTIONS (3)
  - DISEASE PROGRESSION [None]
  - HEART AND LUNG TRANSPLANT [None]
  - PULMONARY HYPERTENSION [None]
